FAERS Safety Report 23356809 (Version 1)
Quarter: 2024Q1

REPORT INFORMATION
  Report Type: Report from Study
  Country: CA (occurrence: CA)
  Receive Date: 20240102
  Receipt Date: 20240102
  Transmission Date: 20240410
  Serious: Yes (Hospitalization)
  Sender: FDA-Public Use
  Company Number: CA-002147023-NVSC2021CA042204

PATIENT
  Age: 44 Year
  Sex: Female

DRUGS (6)
  1. COSENTYX [Suspect]
     Active Substance: SECUKINUMAB
     Indication: Psoriasis
     Dosage: 300 MG, Q2W (X4)
     Route: 058
     Dates: start: 20201119
  2. COSENTYX [Suspect]
     Active Substance: SECUKINUMAB
     Dosage: 300 MG, QMO
     Route: 058
  3. COSENTYX [Suspect]
     Active Substance: SECUKINUMAB
     Dosage: 300 MG, Q2W (ON 1ST AND 15TH ON THE MONTH)
     Route: 058
     Dates: start: 2022
  4. COSENTYX [Suspect]
     Active Substance: SECUKINUMAB
     Dosage: 300 MG, Q2W
     Route: 058
     Dates: start: 20201119
  5. CYCLOSPORINE [Concomitant]
     Active Substance: CYCLOSPORINE
     Indication: Product used for unknown indication
     Dosage: UNK
     Route: 065
  6. ECTOSONE [Concomitant]
     Indication: Product used for unknown indication
     Dosage: UNK (0.1 %)
     Route: 061

REACTIONS (7)
  - Psoriasis [Unknown]
  - Pruritus [Unknown]
  - Dry skin [Unknown]
  - Bacterial infection [Unknown]
  - Cellulitis [Unknown]
  - Impetigo [Unknown]
  - Constipation [Unknown]
